FAERS Safety Report 20667484 (Version 2)
Quarter: 2022Q2

REPORT INFORMATION
  Report Type: Spontaneous
  Country: GB (occurrence: GB)
  Receive Date: 20220404
  Receipt Date: 20220505
  Transmission Date: 20220720
  Serious: Yes (Death, Other)
  Sender: FDA-Public Use
  Company Number: None

PATIENT
  Age: 50 Year
  Sex: Male
  Weight: 92 kg

DRUGS (4)
  1. INVOKANA [Suspect]
     Active Substance: CANAGLIFLOZIN
     Indication: Type 2 diabetes mellitus
     Route: 048
     Dates: start: 20190712, end: 20210311
  2. INVOKANA [Suspect]
     Active Substance: CANAGLIFLOZIN
     Route: 048
     Dates: start: 20210311, end: 20210605
  3. ATORVASTATIN [Concomitant]
     Active Substance: ATORVASTATIN
     Indication: Hypercholesterolaemia
     Route: 065
  4. METFORMIN [Concomitant]
     Active Substance: METFORMIN HYDROCHLORIDE
     Indication: Type 2 diabetes mellitus
     Route: 065

REACTIONS (3)
  - Metastatic carcinoma of the bladder [Fatal]
  - Off label use [Unknown]
  - Incorrect dose administered [Unknown]

NARRATIVE: CASE EVENT DATE: 20201123
